FAERS Safety Report 9329879 (Version 1)
Quarter: 2013Q2

REPORT INFORMATION
  Report Type: Spontaneous
  Country: US (occurrence: US)
  Receive Date: 20130604
  Receipt Date: 20130604
  Transmission Date: 20140414
  Serious: No
  Sender: FDA-Public Use
  Company Number: US-SANOFI-AVENTIS-2013SA005063

PATIENT
  Age: 66 Year
  Sex: Female

DRUGS (2)
  1. LANTUS SOLOSTAR [Suspect]
     Dosage: 30 UNITS IN MORNING DOSE:30 UNIT(S)
     Route: 051
     Dates: start: 201202
  2. SOLOSTAR [Suspect]
     Dates: start: 201202

REACTIONS (3)
  - Oedema peripheral [Unknown]
  - Weight decreased [Unknown]
  - Blood glucose increased [Unknown]
